FAERS Safety Report 10463483 (Version 1)
Quarter: 2014Q3

REPORT INFORMATION
  Report Type: Spontaneous
  Country: US (occurrence: None)
  Receive Date: 20140918
  Receipt Date: 20140918
  Transmission Date: 20150326
  Serious: Yes (Hospitalization)
  Sender: FDA-Public Use
  Company Number: None

PATIENT
  Age: 77 Year
  Sex: Male
  Weight: 83 kg

DRUGS (3)
  1. RITUXIMAB(MOAB C2B8 ANTI CD20, CHIMERIC) [Suspect]
     Active Substance: RITUXIMAB
  2. PENTOSTATIN (DEOXYCOFORMYCIN, DCF) [Suspect]
     Active Substance: PENTOSTATIN
  3. CYCLOPHOSPHAMIDE. [Suspect]
     Active Substance: CYCLOPHOSPHAMIDE

REACTIONS (3)
  - Chills [None]
  - Tremor [None]
  - Pyrexia [None]

NARRATIVE: CASE EVENT DATE: 20120606
